FAERS Safety Report 18414751 (Version 2)
Quarter: 2020Q4

REPORT INFORMATION
  Report Type: Spontaneous
  Country: IT (occurrence: IT)
  Receive Date: 20201022
  Receipt Date: 20201112
  Transmission Date: 20210114
  Serious: Yes (Other)
  Sender: FDA-Public Use
  Company Number: IT-SA-2020SA294010

PATIENT

DRUGS (2)
  1. CABLIVI [Suspect]
     Active Substance: CAPLACIZUMAB-YHDP
     Indication: THROMBOTIC THROMBOCYTOPENIC PURPURA
     Dosage: UNK
     Route: 065
     Dates: start: 20200908, end: 2020
  2. RITUXIMAB. [Concomitant]
     Active Substance: RITUXIMAB
     Dosage: 4 X WEEKLY
     Dates: start: 20200908

REACTIONS (6)
  - Angiopathy [Unknown]
  - Cardiac disorder [Unknown]
  - Intestinal ischaemia [Not Recovered/Not Resolved]
  - Intestinal infarction [Unknown]
  - Platelet count decreased [Not Recovered/Not Resolved]
  - Blood lactate dehydrogenase abnormal [Recovered/Resolved]

NARRATIVE: CASE EVENT DATE: 2020
